FAERS Safety Report 6423506-2 (Version None)
Quarter: 2009Q4

REPORT INFORMATION
  Report Type: 
  Country: None (occurrence: None)
  Receive Date: 20091030
  Receipt Date: 20091030
  Transmission Date: 20100525
  Serious: Yes (Life-Threatening, Hospitalization, Other)
  Sender: FDA-Public Use
  Company Number: None

PATIENT
  Sex: Male
  Weight: 83.9154 kg

DRUGS (1)
  1. SMOKING EVERYWHERE, 1 GOLD CARTRIDGES MFG. SAME AS NAME [Suspect]
     Indication: SMOKING CESSATION THERAPY
     Dosage: LOW { 15 MINS
     Dates: start: 20090808, end: 20090810

REACTIONS (3)
  - INCORRECT DOSE ADMINISTERED [None]
  - POOR QUALITY DRUG ADMINISTERED [None]
  - PRODUCT PACKAGING ISSUE [None]
